FAERS Safety Report 20970580 (Version 1)
Quarter: 2022Q2

REPORT INFORMATION
  Report Type: Spontaneous
  Country: US (occurrence: US)
  Receive Date: 20220616
  Receipt Date: 20220616
  Transmission Date: 20220721
  Serious: No
  Sender: FDA-Public Use
  Company Number: US-SA-SAC20220606001901

PATIENT
  Age: 18 Year
  Sex: Female
  Weight: 126.53 kg

DRUGS (1)
  1. DUPIXENT [Suspect]
     Active Substance: DUPILUMAB
     Indication: Dermatitis atopic
     Dosage: 300 MG, QOW
     Route: 058

REACTIONS (5)
  - Anxiety [Unknown]
  - Skin haemorrhage [Unknown]
  - Scratch [Unknown]
  - Temporomandibular joint syndrome [Unknown]
  - Pruritus [Unknown]
